FAERS Safety Report 4765676-8 (Version None)
Quarter: 2005Q3

REPORT INFORMATION
  Report Type: 
  Country: None (occurrence: None)
  Receive Date: 20050906
  Receipt Date: 20050823
  Transmission Date: 20060218
  Serious: Yes (Hospitalization)
  Sender: FDA-Public Use
  Company Number: 2005117163

PATIENT
  Age: 14 Year
  Sex: Male
  Weight: 69.7 kg

DRUGS (3)
  1. GENOTROPIN [Suspect]
     Indication: HYPOPITUITARISM
     Dosage: 1.2 MG (1.2 MG, 1 IN 1 D), SUBCUTANEOUS
     Route: 058
     Dates: start: 20020925, end: 20050712
  2. PENICILLINE (BENZYLPENICILLIN SODIUM) [Concomitant]
  3. THYROXINE (LEVOTHYROXINE) [Concomitant]

REACTIONS (1)
  - DIABETES MELLITUS INSULIN-DEPENDENT [None]
